FAERS Safety Report 8298743-5 (Version None)
Quarter: 2012Q2

REPORT INFORMATION
  Report Type: 
  Country: None (occurrence: None)
  Receive Date: 20120419
  Receipt Date: 20120411
  Transmission Date: 20120825
  Serious: Yes (Hospitalization)
  Sender: FDA-Public Use
  Company Number: US-ASTRAZENECA-2012SE14124

PATIENT
  Age: 59 Year
  Sex: Female
  Weight: 74.8 kg

DRUGS (4)
  1. SYMBICORT [Suspect]
     Indication: ASTHMA
     Dosage: 160/4.5 MCG, TWO PUFFS BID
     Route: 055
  2. CETIRIZINE HCL [Concomitant]
     Indication: SEASONAL ALLERGY
  3. CITALOPRAM [Concomitant]
     Indication: FATIGUE
  4. CRESTOR [Suspect]
     Dosage: EVERY DAY
     Route: 048

REACTIONS (2)
  - KIDNEY INFECTION [None]
  - CHOLECYSTITIS [None]
